FAERS Safety Report 8886628 (Version 1)
Quarter: 2012Q4

REPORT INFORMATION
  Report Type: 
  Country: US (occurrence: US)
  Receive Date: 20121105
  Receipt Date: 20121105
  Transmission Date: 20130627
  Serious: No
  Sender: FDA-Public Use
  Company Number: US-BAYER-2012-115559

PATIENT
  Age: 81 Year
  Sex: Female
  Weight: 62.59 kg

DRUGS (6)
  1. ALEVE CAPLET/TABLET,MIDOL EXTENDED RELIEF CAPLET [Suspect]
     Dosage: 1 DF, PRN
     Dates: start: 20121023
  2. CENTRUM MULTIVITAMIN [Concomitant]
  3. TRIAMTERENE [Concomitant]
  4. METOPROLOL TARTRATE [Concomitant]
  5. CALCIUM [Concomitant]
  6. PREDNISONE [Concomitant]

REACTIONS (2)
  - Dizziness [Recovered/Resolved]
  - Somnolence [Recovered/Resolved]
